FAERS Safety Report 7936781-X (Version None)
Quarter: 2011Q4

REPORT INFORMATION
  Report Type: 
  Country: None (occurrence: None)
  Receive Date: 20111123
  Receipt Date: 20111118
  Transmission Date: 20120403
  Serious: Yes (Hospitalization)
  Sender: FDA-Public Use
  Company Number: FR-SANOFI-AVENTIS-2011SA074981

PATIENT
  Sex: Male

DRUGS (2)
  1. MULTAQ [Suspect]
     Route: 048
     Dates: start: 20101101, end: 20101201
  2. AMIODARONE HCL [Concomitant]
     Route: 065
     Dates: end: 20100101

REACTIONS (2)
  - GENERAL PHYSICAL HEALTH DETERIORATION [None]
  - BRONCHITIS [None]
